FAERS Safety Report 9770716 (Version 1)
Quarter: 2013Q4

REPORT INFORMATION
  Report Type: Spontaneous
  Country: US (occurrence: US)
  Receive Date: 20131218
  Receipt Date: 20131218
  Transmission Date: 20140711
  Serious: No
  Sender: FDA-Public Use
  Company Number: US-PFIZER INC-2013361560

PATIENT
  Sex: Male

DRUGS (1)
  1. LYRICA [Suspect]
     Indication: COMPLEX REGIONAL PAIN SYNDROME
     Dosage: UNK
     Dates: start: 2004

REACTIONS (4)
  - Off label use [Unknown]
  - Vision blurred [Unknown]
  - Visual impairment [Unknown]
  - Eye disorder [Unknown]
